FAERS Safety Report 6682308-2 (Version None)
Quarter: 2010Q2

REPORT INFORMATION
  Report Type: 
  Country: None (occurrence: None)
  Receive Date: 20100414
  Receipt Date: 20100414
  Transmission Date: 20101027
  Serious: No
  Sender: FDA-Public Use
  Company Number: None

PATIENT
  Age: 85 Year
  Sex: Female
  Weight: 56.246 kg

DRUGS (1)
  1. ALENDRONATE ALLENDRONATE 70MG COBALT LABORATORIES [Suspect]
     Indication: OSTEOPOROSIS
     Dosage: 1 TABLET ONCE A WEEK
     Dates: start: 20080714

REACTIONS (2)
  - DYSPHONIA [None]
  - OESOPHAGITIS [None]
